FAERS Safety Report 12671488 (Version 2)
Quarter: 2016Q4

REPORT INFORMATION
  Report Type: Spontaneous
  Country: JP (occurrence: JP)
  Receive Date: 20160822
  Receipt Date: 20161012
  Transmission Date: 20170207
  Serious: Yes (Hospitalization)
  Sender: FDA-Public Use
  Company Number: PHJP2016JP023347

PATIENT

DRUGS (1)
  1. EXELON PATCH [Suspect]
     Active Substance: RIVASTIGMINE
     Indication: DEMENTIA ALZHEIMER^S TYPE
     Dosage: 9.5 MG, QD PATCH 10 (CM2), TWO 9 MG PATCHES, QD
     Route: 062

REACTIONS (5)
  - Drug administration error [Unknown]
  - Rash [Unknown]
  - Pruritus [Unknown]
  - Incorrect drug administration duration [Unknown]
  - Tuberculosis [Unknown]
